FAERS Safety Report 20746019 (Version 2)
Quarter: 2022Q3

REPORT INFORMATION
  Report Type: Report from Study
  Country: US (occurrence: US)
  Receive Date: 20220425
  Receipt Date: 20220722
  Transmission Date: 20221026
  Serious: No
  Sender: FDA-Public Use
  Company Number: US-MIRM-000275

PATIENT
  Sex: Male

DRUGS (1)
  1. LIVMARLI [Suspect]
     Active Substance: MARALIXIBAT CHLORIDE
     Indication: Pruritus
     Dosage: LIVMARLI STRENGTH WAS 9.5 MG?28JAN2022:BATCH # 1847497A; EXPIRATION DATE: 30NOV2022; SERIAL #: UN...
     Route: 048

REACTIONS (1)
  - Ligament sprain [Unknown]
